FAERS Safety Report 11980930 (Version 1)
Quarter: 2016Q1

REPORT INFORMATION
  Report Type: Spontaneous
  Country: JP (occurrence: JP)
  Receive Date: 20160129
  Receipt Date: 20160129
  Transmission Date: 20160526
  Serious: Yes (Hospitalization)
  Sender: FDA-Public Use
  Company Number: JP-EDISONTHERAPEUTICS-2016-JP-000001

PATIENT
  Age: 32 Year
  Sex: Female
  Weight: 56 kg

DRUGS (2)
  1. OXYTOCIN. [Suspect]
     Active Substance: OXYTOCIN
     Dosage: 5 U
     Route: 042
  2. METHERGINE [Suspect]
     Active Substance: METHYLERGONOVINE MALEATE
     Route: 042

REACTIONS (3)
  - Palpitations [Recovered/Resolved]
  - Atrioventricular block first degree [Recovered/Resolved]
  - Ventricular tachycardia [Unknown]
